FAERS Safety Report 7465008-0 (Version None)
Quarter: 2011Q2

REPORT INFORMATION
  Report Type: 
  Country: None (occurrence: None)
  Receive Date: 20110509
  Receipt Date: 20110429
  Transmission Date: 20111010
  Serious: Yes (Hospitalization, Other)
  Sender: FDA-Public Use
  Company Number: ES-NAPPMUNDI-GBR-2011-0008115

PATIENT
  Sex: Female
  Weight: 50 kg

DRUGS (5)
  1. NALOXONE HCL [Suspect]
     Indication: PAIN
     Dosage: 80 MG, DAILY
     Route: 048
     Dates: start: 20110325, end: 20110325
  2. FENTANYL [Concomitant]
     Indication: PAIN
     Dosage: 600 MG, DAILY
     Route: 048
     Dates: start: 20110325, end: 20110325
  3. PREGABALIN [Concomitant]
     Indication: NEURALGIA
     Dosage: 75 MG, DAILY
     Route: 048
     Dates: start: 20110324, end: 20110325
  4. MORPHINE SULFATE [Suspect]
     Indication: PAIN
     Dosage: 380 MG, DAILY
     Route: 048
     Dates: end: 20110325
  5. DEXAMETHASONE [Concomitant]
     Indication: PAIN
     Dosage: 4 MG, DAILY
     Route: 048
     Dates: start: 20110325

REACTIONS (13)
  - DYSSTASIA [None]
  - DIARRHOEA [None]
  - BALANCE DISORDER [None]
  - FEELING ABNORMAL [None]
  - FEAR [None]
  - COLD SWEAT [None]
  - DIZZINESS [None]
  - NERVOUSNESS [None]
  - MUSCULAR WEAKNESS [None]
  - MYOCLONUS [None]
  - FAECAL INCONTINENCE [None]
  - PYREXIA [None]
  - LEUKOCYTOSIS [None]
